FAERS Safety Report 7409647-1 (Version None)
Quarter: 2011Q2

REPORT INFORMATION
  Report Type: 
  Country: None (occurrence: None)
  Receive Date: 20110412
  Receipt Date: 20110331
  Transmission Date: 20111010
  Serious: Yes (Other)
  Sender: FDA-Public Use
  Company Number: JP-JNJFOC-20110308446

PATIENT
  Age: 14 Year
  Sex: Female

DRUGS (2)
  1. RISPERDAL [Suspect]
     Indication: AUTISM SPECTRUM DISORDER
     Route: 065
  2. FLUVOXAMINE MALEATE [Concomitant]
     Route: 048

REACTIONS (2)
  - SUICIDE ATTEMPT [None]
  - OVERDOSE [None]
